FAERS Safety Report 17510588 (Version 1)
Quarter: 2020Q1

REPORT INFORMATION
  Report Type: Report from Study
  Country: US (occurrence: US)
  Receive Date: 20200306
  Receipt Date: 20200306
  Transmission Date: 20200409
  Serious: Yes (Hospitalization)
  Sender: FDA-Public Use
  Company Number: US-TAIHO ONCOLOGY  INC-EU-2020-00731

PATIENT
  Age: 89 Year
  Sex: Female
  Weight: 52.21 kg

DRUGS (25)
  1. BOSWELLIA SERRATA [Concomitant]
     Dosage: NI
  2. CALCIUM [Concomitant]
     Active Substance: CALCIUM
     Dosage: NI
  3. SODIUM CHLORIDE. [Concomitant]
     Active Substance: SODIUM CHLORIDE
     Dosage: NI
  4. TIMOLOL. [Concomitant]
     Active Substance: TIMOLOL
     Dosage: NI
  5. COMBIVENT RESPIMAT [Concomitant]
     Active Substance: ALBUTEROL SULFATE\IPRATROPIUM BROMIDE
     Dosage: NI
  6. VITAMIN D3 [Concomitant]
     Active Substance: CHOLECALCIFEROL
     Dosage: NI
  7. MATZIM [Concomitant]
     Active Substance: DILTIAZEM
     Dosage: NI
  8. LONSURF [Suspect]
     Active Substance: TIPIRACIL HYDROCHLORIDE\TRIFLURIDINE
     Indication: COLON CANCER
     Dosage: CURRENT CYCLE UNKNOWN
     Route: 048
     Dates: start: 20180702
  9. ELIQUIS [Concomitant]
     Active Substance: APIXABAN
     Dosage: NI
  10. ALEVE [Concomitant]
     Active Substance: NAPROXEN SODIUM
     Dosage: NI
  11. TYLENOL [Concomitant]
     Active Substance: ACETAMINOPHEN
     Dosage: NI
  12. KLOR-CON [Concomitant]
     Active Substance: POTASSIUM CHLORIDE
     Dosage: NI
  13. HYDROCHLOROTHIAZIDE. [Concomitant]
     Active Substance: HYDROCHLOROTHIAZIDE
     Dosage: NI
  14. TOPROL XL [Concomitant]
     Active Substance: METOPROLOL SUCCINATE
     Dosage: NI
  15. PREDNISONE. [Concomitant]
     Active Substance: PREDNISONE
     Dosage: NI
  16. TORSEMIDE. [Concomitant]
     Active Substance: TORSEMIDE
     Dosage: NI
  17. POTASSIUM CHLORIDE. [Concomitant]
     Active Substance: POTASSIUM CHLORIDE
     Dosage: NI
  18. CARDIZEM [Concomitant]
     Active Substance: DILTIAZEM HYDROCHLORIDE
     Dosage: NI
  19. AMLODIPINE [Concomitant]
     Active Substance: AMLODIPINE BESYLATE
     Dosage: NI
  20. ATENOLOL. [Concomitant]
     Active Substance: ATENOLOL
     Dosage: NI
  21. ACETAZOLAMIDE. [Concomitant]
     Active Substance: ACETAZOLAMIDE
     Dosage: NI
  22. FUROSEMIDE. [Concomitant]
     Active Substance: FUROSEMIDE
     Dosage: NI
  23. TRICOR [Concomitant]
     Active Substance: FENOFIBRATE
     Dosage: NI
  24. SILDENAFIL. [Concomitant]
     Active Substance: SILDENAFIL
     Dosage: NI
  25. METHYLPHENIDATE. [Concomitant]
     Active Substance: METHYLPHENIDATE
     Dosage: NI

REACTIONS (1)
  - Carbon dioxide increased [Unknown]

NARRATIVE: CASE EVENT DATE: 20200213
